FAERS Safety Report 9207664 (Version 2)
Quarter: 2013Q2

REPORT INFORMATION
  Report Type: Report from Study
  Country: JP (occurrence: JP)
  Receive Date: 20130403
  Receipt Date: 20130619
  Transmission Date: 20140414
  Serious: Yes (Other)
  Sender: FDA-Public Use
  Company Number: JP-JNJFOC-20130400082

PATIENT
  Age: 60 Year
  Sex: Male

DRUGS (10)
  1. STELARA [Suspect]
     Indication: PSORIASIS
     Route: 058
     Dates: start: 20121108
  2. STELARA [Suspect]
     Indication: PSORIASIS
     Route: 058
     Dates: start: 20120816
  3. STELARA [Suspect]
     Indication: PSORIASIS
     Route: 058
     Dates: start: 20120424
  4. STELARA [Suspect]
     Indication: PSORIASIS
     Route: 058
     Dates: start: 20120522
  5. REZALTAS [Concomitant]
     Indication: HYPERTENSION
     Route: 048
     Dates: start: 20120705
  6. MYSLEE [Concomitant]
     Indication: INSOMNIA
     Route: 048
     Dates: start: 20120705
  7. ANTEBATE [Concomitant]
     Indication: PSORIASIS
     Route: 061
     Dates: start: 20120705
  8. OXAROL [Concomitant]
     Indication: PSORIASIS
     Route: 061
     Dates: start: 20120705
  9. ASMANEX [Concomitant]
     Indication: BRONCHITIS CHRONIC
     Dates: start: 20120529
  10. EPINASTINE [Concomitant]
     Indication: PSORIASIS
     Dates: start: 20120413

REACTIONS (1)
  - Cell marker increased [Recovering/Resolving]
